FAERS Safety Report 7130814-9 (Version None)
Quarter: 2010Q4

REPORT INFORMATION
  Report Type: 
  Country: None (occurrence: None)
  Receive Date: 20101201
  Receipt Date: 20101123
  Transmission Date: 20110411
  Serious: Yes (Hospitalization)
  Sender: FDA-Public Use
  Company Number: US-ROCHE-735108

PATIENT
  Sex: Female
  Weight: 55.3 kg

DRUGS (9)
  1. BEVACIZUMAB [Suspect]
     Indication: NON-SMALL CELL LUNG CANCER STAGE IV
     Dosage: LAST DOSE PRIOR TO SAE: 20 AUGUST 2010
     Route: 042
     Dates: start: 20100618
  2. CARBOPLATIN [Suspect]
     Indication: NON-SMALL CELL LUNG CANCER STAGE IV
     Dosage: LAST DOSE PRIOR TO SAE: 20 AUGUST 2010, DOSE: 6 AUC
     Route: 042
     Dates: start: 20100618
  3. PEMETREXED [Suspect]
     Indication: NON-SMALL CELL LUNG CANCER STAGE IV
     Dosage: LAST DOSE PRIOR TO SAE: 20 AUGUST 2010
     Route: 042
     Dates: start: 20100618
  4. DEXAMETHASONE [Concomitant]
     Dates: start: 20100820, end: 20100821
  5. ATIVAN [Concomitant]
     Dates: start: 20100802
  6. DARVOCET [Concomitant]
     Dates: start: 20100802
  7. TOPROL-XL [Concomitant]
     Dates: start: 20100801, end: 20100823
  8. VITAMIN B-12 [Concomitant]
     Dates: start: 20100611
  9. FOLIC ACID [Concomitant]
     Dates: start: 20100611

REACTIONS (2)
  - HYPERTENSION [None]
  - PALPITATIONS [None]
